FAERS Safety Report 7717186-3 (Version None)
Quarter: 2011Q3

REPORT INFORMATION
  Report Type: 
  Country: None (occurrence: None)
  Receive Date: 20110826
  Receipt Date: 20110826
  Transmission Date: 20111222
  Serious: Yes (Hospitalization)
  Sender: FDA-Public Use
  Company Number: None

PATIENT
  Sex: Female
  Weight: 41 kg

DRUGS (9)
  1. TAXOL [Suspect]
     Dosage: 231 MG
     Dates: end: 20110815
  2. BISMUTH SUBSALICYLATE [Concomitant]
  3. AMBIEN [Concomitant]
  4. FENTAYL PATCH [Concomitant]
  5. TOPROL-XL [Concomitant]
  6. DILUADID [Concomitant]
  7. ZOFRAN [Concomitant]
  8. CISPLATIN [Suspect]
     Dosage: 66 MG
     Dates: end: 20110815
  9. PROZAC [Concomitant]

REACTIONS (4)
  - NAUSEA [None]
  - TREATMENT NONCOMPLIANCE [None]
  - ANAEMIA [None]
  - BACK PAIN [None]
